FAERS Safety Report 17436167 (Version 1)
Quarter: 2020Q1

REPORT INFORMATION
  Report Type: Report from Study
  Country: CO (occurrence: CO)
  Receive Date: 20200219
  Receipt Date: 20200219
  Transmission Date: 20200409
  Serious: Yes (Other)
  Sender: FDA-Public Use
  Company Number: CO-JNJFOC-20191144239

PATIENT
  Age: 54 Year
  Sex: Female
  Weight: 64 kg

DRUGS (10)
  1. SIMPONI [Suspect]
     Active Substance: GOLIMUMAB
     Indication: RHEUMATOID ARTHRITIS
     Route: 058
     Dates: start: 20181227, end: 20190225
  2. METHOTREXATE. [Concomitant]
     Active Substance: METHOTREXATE
     Indication: RHEUMATOID ARTHRITIS
     Route: 048
  3. METOCARBAMOL [Concomitant]
     Active Substance: METHOCARBAMOL
  4. SIMPONI [Suspect]
     Active Substance: GOLIMUMAB
     Route: 058
     Dates: start: 20191212
  5. DICLOFENAC [Concomitant]
     Active Substance: DICLOFENAC
  6. CALCIUM [Concomitant]
     Active Substance: CALCIUM
  7. SOMPRAZOL [Concomitant]
  8. FOLIC ACID. [Concomitant]
     Active Substance: FOLIC ACID
  9. VITAMIN B12 [Concomitant]
     Active Substance: CYANOCOBALAMIN
  10. SIMPONI [Suspect]
     Active Substance: GOLIMUMAB
     Route: 058
     Dates: start: 2019, end: 20191112

REACTIONS (10)
  - Pain in jaw [Recovering/Resolving]
  - Fibromyalgia [Recovering/Resolving]
  - Osteopenia [Recovering/Resolving]
  - Depressed mood [Recovering/Resolving]
  - Osteoarthritis [Recovering/Resolving]
  - Rheumatoid arthritis [Recovering/Resolving]
  - Malaise [Recovering/Resolving]
  - Anxiety [Recovering/Resolving]
  - Influenza [Recovering/Resolving]
  - Constipation [Recovering/Resolving]

NARRATIVE: CASE EVENT DATE: 2019
